FAERS Safety Report 6024125-2 (Version None)
Quarter: 2008Q4

REPORT INFORMATION
  Report Type: 
  Country: None (occurrence: None)
  Receive Date: 20081230
  Receipt Date: 20081223
  Transmission Date: 20090506
  Serious: Yes (Life-Threatening, Hospitalization, Other)
  Sender: FDA-Public Use
  Company Number: GR-ABBOTT-08P-066-0448440-00

PATIENT
  Age: 68 Year
  Sex: Female
  Weight: 66 kg

DRUGS (5)
  1. HUMIRA [Suspect]
     Indication: RHEUMATOID ARTHRITIS
     Dosage: 40MG, EVERY OTHER WEEK
     Route: 058
     Dates: start: 20070301, end: 20071101
  2. METHOTREXATE [Concomitant]
     Indication: RHEUMATOID ARTHRITIS
     Dosage: 10MG, PER WEEK
     Route: 048
     Dates: start: 20060619, end: 20071101
  3. PREZOLON [Concomitant]
     Indication: RHEUMATOID ARTHRITIS
     Dosage: 1 IN THE MORNING, 1/2 IN THE EVENING
     Route: 048
     Dates: start: 20080201
  4. FEROFOLIC [Concomitant]
     Indication: RHEUMATOID ARTHRITIS
     Dosage: 500MG, TOTAL DAILY DOSE
     Route: 048
     Dates: start: 20060216, end: 20071101
  5. Z-BEC [Concomitant]
     Indication: HYPERTENSION
     Route: 048
     Dates: start: 19930101, end: 20071101

REACTIONS (4)
  - ABDOMINAL PAIN [None]
  - ASCITES [None]
  - LOCALISED OEDEMA [None]
  - OVARIAN CANCER [None]
